FAERS Safety Report 11519962 (Version 1)
Quarter: 2015Q3

REPORT INFORMATION
  Report Type: Spontaneous
  Country: US (occurrence: US)
  Receive Date: 20150918
  Receipt Date: 20150918
  Transmission Date: 20151125
  Serious: No
  Sender: FDA-Public Use
  Company Number: US-RB-068131-14

PATIENT

DRUGS (1)
  1. MUCINEX MAXIMUM STRENGTH [Suspect]
     Active Substance: GUAIFENESIN
     Indication: RESPIRATORY TRACT CONGESTION
     Dosage: 1200MG. PRODUCT LAST USED ON: 19/AUG/2014; AMOUNT USED: 1 TABLET.,QD
     Route: 065
     Dates: start: 20140819

REACTIONS (3)
  - Insomnia [Unknown]
  - Dizziness [Unknown]
  - Choking sensation [Unknown]

NARRATIVE: CASE EVENT DATE: 20140819
